FAERS Safety Report 24572430 (Version 1)
Quarter: 2024Q4

REPORT INFORMATION
  Report Type: Spontaneous
  Country: US (occurrence: None)
  Receive Date: 20241101
  Receipt Date: 20241101
  Transmission Date: 20250115
  Serious: No
  Sender: Public
  Company Number: None

PATIENT
  Age: 35 Year
  Sex: Female

DRUGS (1)
  1. ETONOGESTREL [Suspect]
     Active Substance: ETONOGESTREL
     Indication: Contraception

REACTIONS (3)
  - Intermenstrual bleeding [None]
  - Polymenorrhoea [None]
  - Lactation insufficiency [None]

NARRATIVE: CASE EVENT DATE: 20241101
